FAERS Safety Report 17974271 (Version 3)
Quarter: 2020Q3

REPORT INFORMATION
  Report Type: Spontaneous
  Country: US (occurrence: US)
  Receive Date: 20200702
  Receipt Date: 20200820
  Transmission Date: 20201103
  Serious: No
  Sender: FDA-Public Use
  Company Number: US-BAUSCH-BL-2020-018718

PATIENT
  Age: 74 Year
  Sex: Female
  Weight: 68.1 kg

DRUGS (3)
  1. LUMIFY [Suspect]
     Active Substance: BRIMONIDINE TARTRATE
     Indication: OCULAR HYPERAEMIA
     Dosage: ONE TO TWO DROPS IN EACH EYE ONCE DAILY AS NEEDED, TWO MONTHS AGO FROM FU RECEIVED ON 24/JUL/2020
     Route: 047
     Dates: start: 202005, end: 2020
  2. LUMIFY [Suspect]
     Active Substance: BRIMONIDINE TARTRATE
     Indication: EYE LUBRICATION THERAPY
  3. TIMOPTIC [Concomitant]
     Active Substance: TIMOLOL MALEATE
     Indication: PRODUCT USED FOR UNKNOWN INDICATION

REACTIONS (1)
  - Eye irritation [Recovered/Resolved]

NARRATIVE: CASE EVENT DATE: 202005
